FAERS Safety Report 13575175 (Version 2)
Quarter: 2017Q2

REPORT INFORMATION
  Report Type: Report from Study
  Country: JP (occurrence: JP)
  Receive Date: 20170524
  Receipt Date: 20170621
  Transmission Date: 20170830
  Serious: Yes (Other)
  Sender: FDA-Public Use
  Company Number: JP-AMGEN-JPNNI2017077074

PATIENT
  Age: 67 Year
  Sex: Female

DRUGS (3)
  1. CARFILZOMIB [Suspect]
     Active Substance: CARFILZOMIB
     Dosage: UNK
     Route: 065
     Dates: end: 20170419
  2. CARFILZOMIB [Suspect]
     Active Substance: CARFILZOMIB
     Indication: PLASMA CELL MYELOMA
     Dosage: UNK
     Route: 065
     Dates: start: 20161026
  3. CARFILZOMIB [Suspect]
     Active Substance: CARFILZOMIB
     Dosage: UNK
     Route: 065

REACTIONS (5)
  - Hypertension [Recovering/Resolving]
  - Gastroenteritis [Recovering/Resolving]
  - Influenza [Recovering/Resolving]
  - Platelet count decreased [Recovering/Resolving]
  - Electrocardiogram ST segment depression [Recovering/Resolving]

NARRATIVE: CASE EVENT DATE: 20161111
